FAERS Safety Report 14989792 (Version 1)
Quarter: 2018Q2

REPORT INFORMATION
  Report Type: Spontaneous
  Country: US (occurrence: US)
  Receive Date: 20180608
  Receipt Date: 20180608
  Transmission Date: 20180711
  Serious: No
  Sender: FDA-Public Use
  Company Number: US-ROCHE-1963624

PATIENT
  Sex: Female

DRUGS (7)
  1. CELLCEPT [Concomitant]
     Active Substance: MYCOPHENOLATE MOFETIL\MYCOPHENOLATE MOFETIL HYDROCHLORIDE
  2. OXYCODONE [Concomitant]
     Active Substance: OXYCODONE
  3. CHANTIX [Concomitant]
     Active Substance: VARENICLINE TARTRATE
  4. ACTEMRA [Suspect]
     Active Substance: TOCILIZUMAB
     Indication: RHEUMATOID ARTHRITIS
     Dosage: QOW
     Route: 058
     Dates: start: 20170714
  5. SERTRALINE [Concomitant]
     Active Substance: SERTRALINE HYDROCHLORIDE
  6. CIALIS [Concomitant]
     Active Substance: TADALAFIL
  7. OMEPRAZOLE. [Concomitant]
     Active Substance: OMEPRAZOLE

REACTIONS (3)
  - Nasal ulcer [Unknown]
  - Mouth ulceration [Unknown]
  - Fatigue [Unknown]
